FAERS Safety Report 24583975 (Version 1)
Quarter: 2024Q4

REPORT INFORMATION
  Report Type: Spontaneous
  Country: US (occurrence: None)
  Receive Date: 20241105
  Receipt Date: 20241105
  Transmission Date: 20250115
  Serious: Yes (Hospitalization)
  Sender: Public
  Company Number: None

PATIENT
  Sex: Female

DRUGS (2)
  1. KISQALI [Suspect]
     Active Substance: RIBOCICLIB
     Indication: Cellulitis
     Dosage: OTHER FREQUENCY : 1TIMEADAYFOR21DAYSOFA28DAYCYCLE;?
     Route: 048
     Dates: start: 202206
  2. KISQALI [Suspect]
     Active Substance: RIBOCICLIB
     Indication: Lymphoedema

REACTIONS (2)
  - Cellulitis [None]
  - Lymphoedema [None]
